FAERS Safety Report 5457185-8 (Version None)
Quarter: 2007Q3

REPORT INFORMATION
  Report Type: 
  Country: None (occurrence: None)
  Receive Date: 20070918
  Receipt Date: 20070117
  Transmission Date: 20080115
  Serious: No
  Sender: FDA-Public Use
  Company Number: US-ASTRAZENECA-2007UW00918

PATIENT
  Sex: Male

DRUGS (4)
  1. SEROQUEL [Suspect]
     Indication: MOOD SWINGS
     Route: 048
  2. PROZAC [Concomitant]
  3. XANAX [Concomitant]
  4. LOPID [Concomitant]

REACTIONS (1)
  - LETHARGY [None]
